FAERS Safety Report 6149099-5 (Version None)
Quarter: 2009Q2

REPORT INFORMATION
  Report Type: 
  Country: None (occurrence: None)
  Receive Date: 20090409
  Receipt Date: 20090401
  Transmission Date: 20091009
  Serious: Yes (Hospitalization, Disabling, Other)
  Sender: FDA-Public Use
  Company Number: PHEH2004US10391

PATIENT

DRUGS (16)
  1. ZOMETA [Suspect]
     Indication: PROSTATE CANCER
     Dosage: 4 MG, Q 4 WEEKS
     Route: 042
     Dates: start: 20021127, end: 20040924
  2. DECADRON [Concomitant]
     Dates: start: 20020729, end: 20020930
  3. RADIATION THERAPY [Concomitant]
     Dosage: 6660 CGI TO PELVIS
     Dates: start: 20021223, end: 20030213
  4. LISINOPRIL AND HYDROCHLOROTHIAZIDE [Concomitant]
     Dosage: 12.5/20 MG
  5. VITAMIN D [Concomitant]
  6. SELENIUM [Concomitant]
  7. LYCOPENE [Concomitant]
  8. CELECOXIB [Concomitant]
  9. DIVALPROEX SODIUM [Concomitant]
     Dosage: 50 MG, UNK
  10. ALLOPURINOL [Concomitant]
     Dosage: 300 MG, UNK
  11. ATENOLOL [Concomitant]
     Dosage: 50 MG, UNK
  12. VITAMIN E [Concomitant]
  13. ZESTORETIC [Concomitant]
     Dosage: 20/25 MG
  14. CRESTOR [Concomitant]
     Dosage: 10 MG, UNK
  15. VERAPAMIL [Concomitant]
     Dosage: 240 MG, QD
  16. VASOTEC [Concomitant]
     Dosage: 10 MG, QD

REACTIONS (31)
  - ARTHRITIS [None]
  - BONE DISORDER [None]
  - BONE LESION [None]
  - CARDIOMEGALY [None]
  - ENDODONTIC PROCEDURE [None]
  - FATIGUE [None]
  - GYNAECOMASTIA [None]
  - HAEMORRHAGE [None]
  - INFECTION [None]
  - INJURY [None]
  - JAW OPERATION [None]
  - LYMPHADENOPATHY [None]
  - METASTASES TO LYMPH NODES [None]
  - METASTASES TO REPRODUCTIVE ORGAN [None]
  - MUCOSAL ULCERATION [None]
  - ORAL PAIN [None]
  - OSTEOMYELITIS [None]
  - OSTEONECROSIS [None]
  - PAIN IN JAW [None]
  - PLATELET COUNT DECREASED [None]
  - PROSTATE CANCER METASTATIC [None]
  - PROSTATIC SPECIFIC ANTIGEN INCREASED [None]
  - PULMONARY EMBOLISM [None]
  - PURULENCE [None]
  - PYREXIA [None]
  - RIB FRACTURE [None]
  - SINUS DISORDER [None]
  - TOOTH DISORDER [None]
  - TOOTH EXTRACTION [None]
  - TOOTH INFECTION [None]
  - WEIGHT DECREASED [None]
